FAERS Safety Report 17077827 (Version 1)
Quarter: 2019Q4

REPORT INFORMATION
  Report Type: Report from Study
  Country: US (occurrence: US)
  Receive Date: 20191126
  Receipt Date: 20191126
  Transmission Date: 20200122
  Serious: Yes (Other)
  Sender: FDA-Public Use
  Company Number: NVSC2019US048363

PATIENT
  Age: 34 Year
  Sex: Male

DRUGS (1)
  1. GILENYA [Suspect]
     Active Substance: FINGOLIMOD HYDROCHLORIDE
     Indication: MULTIPLE SCLEROSIS
     Dosage: UNK, QD
     Route: 048

REACTIONS (5)
  - Lymphopenia [Unknown]
  - Eczema nummular [Unknown]
  - Lymphocyte count abnormal [Unknown]
  - Haemangioma of skin [Unknown]
  - Tinea versicolour [Unknown]

NARRATIVE: CASE EVENT DATE: 20170419
